FAERS Safety Report 9563270 (Version 4)
Quarter: 2013Q4

REPORT INFORMATION
  Report Type: Report from Study
  Country: US (occurrence: US)
  Receive Date: 20130927
  Receipt Date: 20131118
  Transmission Date: 20140711
  Serious: Yes (Hospitalization)
  Sender: FDA-Public Use
  Company Number: PHEH2013US020176

PATIENT
  Age: 25 Year
  Sex: Male

DRUGS (12)
  1. TOBI [Suspect]
     Indication: CYSTIC FIBROSIS
     Dosage: 300 MG, BID (FOR 28 DAYS, EVERY OTHER MONTH)
     Dates: start: 1995
  2. CEFEPIME [Suspect]
     Dosage: UNK UKN, UNK
  3. OMEPRAZOLE [Concomitant]
     Dosage: UNK UKN, UNK
  4. CIPROFLOXACIN [Concomitant]
     Dosage: UNK UKN, UNK
  5. CEPHALEXIN [Concomitant]
     Dosage: UNK UKN, UNK
  6. MONTELUKAST [Concomitant]
     Dosage: UNK UKN, UNK
  7. ALLEGRA [Concomitant]
     Dosage: UNK UKN, UNK
  8. RANITIDINE [Concomitant]
     Dosage: UNK UKN, UNK
  9. ALBUTEROL SULFATE [Concomitant]
     Dosage: UNK UKN, UNK
  10. CREON [Concomitant]
     Dosage: UNK UKN, UNK
  11. FIBER LAX [Concomitant]
     Dosage: UNK UKN, UNK
  12. ANTIBIOTICS [Concomitant]
     Dosage: UNK UKN, UNK
     Route: 042

REACTIONS (3)
  - Infective pulmonary exacerbation of cystic fibrosis [Unknown]
  - Urticaria [Unknown]
  - Hypersensitivity [Unknown]
